FAERS Safety Report 25079920 (Version 5)
Quarter: 2025Q2

REPORT INFORMATION
  Report Type: Spontaneous
  Country: CA (occurrence: CA)
  Receive Date: 20250314
  Receipt Date: 20250605
  Transmission Date: 20250716
  Serious: Yes (Hospitalization)
  Sender: BOEHRINGER INGELHEIM
  Company Number: CA-BoehringerIngelheim-2025-BI-015039

PATIENT
  Age: 89 Year
  Sex: Female

DRUGS (22)
  1. LINAGLIPTIN [Suspect]
     Active Substance: LINAGLIPTIN
     Indication: Type 2 diabetes mellitus
     Dosage: EVERY MORNING (ONCE DAILY)
  2. MIRAPEX [Suspect]
     Active Substance: PRAMIPEXOLE DIHYDROCHLORIDE
     Indication: Product used for unknown indication
     Dosage: ONCE NIGHTLY
  3. BASAGLAR KWIKPEN [Suspect]
     Active Substance: INSULIN GLARGINE
     Indication: Product used for unknown indication
     Dates: start: 2024, end: 202503
  4. Auro-Mirtazapine (mirtazapine), Mirtazapine (remeron) [Concomitant]
     Indication: Product used for unknown indication
     Dosage: NIGHTLY
  5. PRAMIPEXOLE DIHYDROCHLORIDE [Concomitant]
     Active Substance: PRAMIPEXOLE DIHYDROCHLORIDE
     Indication: Product used for unknown indication
  6. CELEXA [Concomitant]
     Active Substance: CITALOPRAM HYDROBROMIDE
     Indication: Product used for unknown indication
     Dosage: DAILY WITH DINNER
  7. NEURONTIN [Concomitant]
     Active Substance: GABAPENTIN
     Indication: Product used for unknown indication
     Dosage: 100 MG, 3 TIMES DAILY.
  8. LB Enteric CTD ASA (aspirin) [Concomitant]
     Indication: Product used for unknown indication
     Dosage: 81 MG DAILY
  9. Pantoprazole T (pantoprazole magnesium, TECTA) [Concomitant]
     Indication: Product used for unknown indication
     Dosage: DELAYED RELEASE (DR/EC), 1 TABLET 2 TIMES DAILY.
  10. Pentoxifylline SR, long acting (trental) [Concomitant]
     Indication: Product used for unknown indication
     Dosage: 3 TIMES DAILY WITH MEALS, DO NOT CRUSH, CHEW OR SPLIT.
  11. CRESTOR [Concomitant]
     Active Substance: ROSUVASTATIN CALCIUM
     Indication: Product used for unknown indication
     Dosage: NIGHTLY
  12. sennosides (Senekot) [Concomitant]
     Indication: Product used for unknown indication
  13. Solifenacin (vesicare) [Concomitant]
     Indication: Product used for unknown indication
     Dosage: AT BEDTIME (NIGHTLY)
  14. Taro-docusate (docusate sodium/Colace, Soflax) [Concomitant]
     Indication: Product used for unknown indication
     Dosage: 2 TIMES DAILY
  15. Vitamin D3 (cholecalciferol/Vitamin D-3) [Concomitant]
     Indication: Product used for unknown indication
     Dosage: 1,000 UNIT (25 MCG).  2,000 UNITS, DAILY.
  16. LANTUS SOLOSTAR [Concomitant]
     Active Substance: INSULIN GLARGINE
     Dosage: 8 UNITS UNDER THE SKIN ONE TIME EACH DAY IN THE MORNING.
     Dates: start: 20250315
  17. LASIX [Concomitant]
     Active Substance: FUROSEMIDE
  18. Acetaminophen (tylenol extra strength) [Concomitant]
     Dosage: 500 MG EVERY 6 HOURS PRN
  19. PROLIA [Concomitant]
     Active Substance: DENOSUMAB
     Dosage: 60 MG/ML SYRINGE, EVERY 6 MONTHS.
  20. VITAMINS [Concomitant]
     Active Substance: VITAMINS
     Dosage: 1 TABLET, DAILY.
  21. Vitamin B12, VITAMIN B-12 ORAL [Concomitant]
     Dosage: 1 TABLET, DAILY.
  22. VITAMIN C [Concomitant]
     Active Substance: ASCORBIC ACID
     Dosage: DAILY

REACTIONS (14)
  - Hypoglycaemia [Unknown]
  - Asthenia [Unknown]
  - Unresponsive to stimuli [Recovered/Resolved]
  - Body temperature decreased [Unknown]
  - Dyspnoea [Unknown]
  - Oxygen saturation decreased [Unknown]
  - Pneumonia bacterial [Unknown]
  - Blood glucose increased [Unknown]
  - Blood glucose decreased [Unknown]
  - Blood glucose fluctuation [Unknown]
  - Blood glucose increased [Recovered/Resolved]
  - Drug ineffective [Unknown]
  - Amnesia [Unknown]
  - Self-medication [Unknown]

NARRATIVE: CASE EVENT DATE: 20250301
